FAERS Safety Report 8595844-9 (Version None)
Quarter: 2012Q3

REPORT INFORMATION
  Report Type: 
  Country: None (occurrence: None)
  Receive Date: 20120815
  Receipt Date: 20120809
  Transmission Date: 20120928
  Serious: Yes (Other)
  Sender: FDA-Public Use
  Company Number: PHHY2012AU068596

PATIENT
  Age: 77 Year
  Sex: Male

DRUGS (2)
  1. METOPROLOL TARTRATE [Suspect]
     Indication: ARRHYTHMIA
     Dosage: 12.5 MG, BID
  2. AMIODARONE HCL [Suspect]
     Indication: ARRHYTHMIA
     Dosage: 100 MG/DAY
     Route: 048

REACTIONS (8)
  - EYE SWELLING [None]
  - JOINT SWELLING [None]
  - FATIGUE [None]
  - URTICARIA [None]
  - CHEST DISCOMFORT [None]
  - LACRIMATION INCREASED [None]
  - HYPOTHYROIDISM [None]
  - RHINORRHOEA [None]
